FAERS Safety Report 13229076 (Version 1)
Quarter: 2017Q1

REPORT INFORMATION
  Report Type: Spontaneous
  Country: US (occurrence: US)
  Receive Date: 20170214
  Receipt Date: 20170214
  Transmission Date: 20170428
  Serious: No
  Sender: FDA-Public Use
  Company Number: US-ASTRAZENECA-2010BM01380

PATIENT
  Age: 24219 Day
  Sex: Male
  Weight: 136.1 kg

DRUGS (14)
  1. BYDUREON [Suspect]
     Active Substance: EXENATIDE
     Indication: TYPE 2 DIABETES MELLITUS
     Route: 058
  2. OMEGA-3 ACIDS [Concomitant]
     Active Substance: OMEGA-3 FATTY ACIDS
  3. KOMBIGLYZE XR [Suspect]
     Active Substance: METFORMIN HYDROCHLORIDE\SAXAGLIPTIN HYDROCHLORIDE
     Route: 048
  4. BUSPIRONE [Concomitant]
     Active Substance: BUSPIRONE HYDROCHLORIDE
  5. ATORVASTATIN [Concomitant]
     Active Substance: ATORVASTATIN
  6. LIPITOR [Concomitant]
     Active Substance: ATORVASTATIN CALCIUM
  7. SEROTONIN REUPTAKE INHIBITORS [Concomitant]
  8. ZETIA [Concomitant]
     Active Substance: EZETIMIBE
  9. BABY ASPIRIN [Concomitant]
     Active Substance: ASPIRIN
  10. INVOKANA [Concomitant]
     Active Substance: CANAGLIFLOZIN
  11. ONGLYZA [Suspect]
     Active Substance: SAXAGLIPTIN HYDROCHLORIDE
     Route: 048
  12. LISINOPRIL. [Concomitant]
     Active Substance: LISINOPRIL
  13. DUPROPINE SR [Concomitant]
  14. METFORMIN [Concomitant]
     Active Substance: METFORMIN HYDROCHLORIDE

REACTIONS (9)
  - Psoriasis [Not Recovered/Not Resolved]
  - Injection site haemorrhage [Recovered/Resolved]
  - Swelling [Unknown]
  - Parosmia [Unknown]
  - Skin disorder [Not Recovered/Not Resolved]
  - Drug hypersensitivity [Unknown]
  - Nodule [Not Recovered/Not Resolved]
  - Peripheral swelling [Recovered/Resolved with Sequelae]
  - Thrombosis [Unknown]

NARRATIVE: CASE EVENT DATE: 20160930
